FAERS Safety Report 9298663 (Version 1)
Quarter: 2013Q2

REPORT INFORMATION
  Report Type: Spontaneous
  Country: FR (occurrence: FR)
  Receive Date: 20130520
  Receipt Date: 20130520
  Transmission Date: 20140414
  Serious: Yes (Hospitalization)
  Sender: FDA-Public Use
  Company Number: FR-VERTEX PHARMACEUTICALS INC-2013-006105

PATIENT
  Age: 58 Year
  Sex: Female

DRUGS (8)
  1. INCIVO [Suspect]
     Indication: HEPATITIS C
     Dosage: 375 MG, UNK
     Route: 048
     Dates: start: 20130122, end: 20130408
  2. INCIVO [Suspect]
     Indication: HEPATIC CIRRHOSIS
  3. PEGASYS [Suspect]
     Indication: HEPATIC CIRRHOSIS
     Dosage: UNK
     Route: 048
     Dates: start: 20130122, end: 20130422
  4. PEGASYS [Suspect]
     Indication: HEPATITIS C
  5. RIBAVIRIN [Suspect]
     Indication: HEPATIC CIRRHOSIS
     Dosage: 600 MG, UNK
     Route: 048
     Dates: start: 20130327, end: 20130422
  6. RIBAVIRIN [Suspect]
     Indication: HEPATITIS C
     Dosage: 800 MG, UNK
     Route: 048
     Dates: start: 20130122
  7. FOLIC ACID [Suspect]
     Indication: HEPATIC CIRRHOSIS
     Dosage: UNK
     Route: 065
  8. FOLIC ACID [Suspect]
     Indication: HEPATITIS C

REACTIONS (2)
  - Drug reaction with eosinophilia and systemic symptoms [Recovered/Resolved]
  - Anaemia [Unknown]
